FAERS Safety Report 23637733 (Version 1)
Quarter: 2024Q1

REPORT INFORMATION
  Report Type: Spontaneous
  Country: FR (occurrence: FR)
  Receive Date: 20240315
  Receipt Date: 20240315
  Transmission Date: 20240410
  Serious: Yes (Life-Threatening, Other)
  Sender: FDA-Public Use
  Company Number: None

PATIENT
  Age: 62 Year
  Sex: Male
  Weight: 59 kg

DRUGS (2)
  1. OPDIVO [Suspect]
     Active Substance: NIVOLUMAB
     Indication: Pharyngeal cancer
     Route: 042
     Dates: start: 20230717, end: 20240207
  2. YERVOY [Suspect]
     Active Substance: IPILIMUMAB
     Indication: Pharyngeal cancer
     Route: 042
     Dates: start: 20230717, end: 20240124

REACTIONS (4)
  - Hyperthyroidism [Not Recovered/Not Resolved]
  - Interstitial lung disease [Recovering/Resolving]
  - Alveolitis [Recovering/Resolving]
  - Off label use [Unknown]

NARRATIVE: CASE EVENT DATE: 20230915
